FAERS Safety Report 22360852 (Version 1)
Quarter: 2023Q2

REPORT INFORMATION
  Report Type: Spontaneous
  Country: US (occurrence: US)
  Receive Date: 20230524
  Receipt Date: 20230524
  Transmission Date: 20230721
  Serious: No
  Sender: FDA-Public Use
  Company Number: US-JNJFOC-20230536069

PATIENT
  Sex: Female
  Weight: 73.548 kg

DRUGS (2)
  1. INFLIXIMAB [Suspect]
     Active Substance: INFLIXIMAB
     Indication: Colitis
     Route: 041
  2. AMOXICILLIN AND CLAVULANATE POTASSIUM (14:1) [Concomitant]

REACTIONS (4)
  - Constipation [Unknown]
  - Pain [Unknown]
  - Palpitations [Unknown]
  - Off label use [Unknown]
